FAERS Safety Report 8480931-6 (Version None)
Quarter: 2012Q2

REPORT INFORMATION
  Report Type: 
  Country: None (occurrence: None)
  Receive Date: 20120627
  Receipt Date: 20120618
  Transmission Date: 20120825
  Serious: Yes (Other)
  Sender: FDA-Public Use
  Company Number: US-ACCORD-013823

PATIENT
  Sex: Male

DRUGS (1)
  1. GEMCITABINE [Suspect]
     Dosage: TWO CYCLES.

REACTIONS (1)
  - ERYTHEMA [None]
